FAERS Safety Report 12749442 (Version 3)
Quarter: 2017Q1

REPORT INFORMATION
  Report Type: Report from Study
  Country: None (occurrence: US)
  Receive Date: 20160915
  Receipt Date: 20170323
  Transmission Date: 20170428
  Serious: Yes (Hospitalization, Other)
  Sender: FDA-Public Use
  Company Number: US-ABBVIE-16P-163-1722909-00

PATIENT
  Age: 10 Year
  Sex: Male
  Weight: 28.5 kg

DRUGS (6)
  1. HUMIRA [Suspect]
     Active Substance: ADALIMUMAB
     Route: 058
     Dates: start: 20160825, end: 20161017
  2. MIRALAX [Concomitant]
     Active Substance: POLYETHYLENE GLYCOL 3350
     Indication: DYSCHEZIA
     Route: 048
     Dates: start: 20150904
  3. HUMIRA [Suspect]
     Active Substance: ADALIMUMAB
     Indication: CROHN^S DISEASE
     Route: 058
     Dates: start: 20131016
  4. REMERON [Concomitant]
     Active Substance: MIRTAZAPINE
     Indication: ANXIETY
     Route: 048
     Dates: start: 20160811
  5. LACTOBACILLUS [Concomitant]
     Active Substance: LACTOBACILLUS ACIDOPHILUS
     Indication: PROBIOTIC THERAPY
     Route: 048
     Dates: start: 20150624
  6. VALIUM [Concomitant]
     Active Substance: DIAZEPAM
     Indication: WOUND TREATMENT
     Route: 048
     Dates: start: 20160812

REACTIONS (2)
  - Crohn^s disease [Recovered/Resolved]
  - Rectal stenosis [Recovered/Resolved]

NARRATIVE: CASE EVENT DATE: 20160831
